FAERS Safety Report 25652686 (Version 2)
Quarter: 2025Q4

REPORT INFORMATION
  Report Type: Spontaneous
  Country: US (occurrence: US)
  Receive Date: 20250807
  Receipt Date: 20251212
  Transmission Date: 20260118
  Serious: No
  Sender: TOLMAR
  Company Number: US-Tolmar-TLM-2025-04735

PATIENT

DRUGS (3)
  1. ELIGARD [Suspect]
     Active Substance: LEUPROLIDE ACETATE
     Indication: Prostate cancer
     Dosage: SERIAL NO. 2670952482487?EXPIRATION DATE: FEB-2026; JAN-2026; JAN-2026? DOSE NOT ADMINISTERED
     Route: 065
     Dates: start: 20241014
  2. ELIGARD [Suspect]
     Active Substance: LEUPROLIDE ACETATE
     Dosage: REPLACEMENT DOSE GIVEN
     Route: 065
  3. DEVICE [Suspect]
     Active Substance: DEVICE
     Indication: Prostate cancer
     Dosage: SERIAL NO. 2670952482487??EXPIRATION DATE: FEB-2026; JAN-2026; JAN-2026

REACTIONS (4)
  - Intercepted product preparation error [Unknown]
  - Product preparation error [Unknown]
  - Device leakage [Unknown]
  - Device issue [Unknown]
